FAERS Safety Report 26154913 (Version 2)
Quarter: 2025Q4

REPORT INFORMATION
  Report Type: Spontaneous
  Country: US (occurrence: US)
  Receive Date: 20251215
  Receipt Date: 20251223
  Transmission Date: 20260118
  Serious: No
  Sender: MICRO LABS LIMITED
  Company Number: US-MICRO LABS LIMITED-ML2025-06512

PATIENT
  Age: 46 Year
  Sex: Female

DRUGS (2)
  1. CROMOLYN SODIUM [Suspect]
     Active Substance: CROMOLYN SODIUM
     Indication: Mast cell activation syndrome
     Dosage: SHE STATED SHE WAS USING IT FOUR TIMES A DAY, HALF AN HOUR BEFORE SHE EATS AND THAT SHE WAS INSTRUCT
     Route: 048
     Dates: start: 202511
  2. CROMOLYN SODIUM [Suspect]
     Active Substance: CROMOLYN SODIUM
     Indication: Anaphylactic reaction

REACTIONS (7)
  - Burning sensation [Not Recovered/Not Resolved]
  - Muscle spasms [Unknown]
  - Paraesthesia [Not Recovered/Not Resolved]
  - Hypoaesthesia [Not Recovered/Not Resolved]
  - Peripheral swelling [Not Recovered/Not Resolved]
  - Pain in extremity [Recovered/Resolved with Sequelae]
  - Musculoskeletal stiffness [Unknown]

NARRATIVE: CASE EVENT DATE: 20251101
